FAERS Safety Report 10016467 (Version 2)
Quarter: 2014Q1

REPORT INFORMATION
  Report Type: Report from Study
  Country: NL (occurrence: NL)
  Receive Date: 20140317
  Receipt Date: 20140317
  Transmission Date: 20141002
  Serious: Yes (Other)
  Sender: FDA-Public Use
  Company Number: NL-ABBVIE-11P-114-0834802-00

PATIENT
  Age: 49 Year
  Sex: Female
  Weight: 83 kg

DRUGS (5)
  1. HUMIRA [Suspect]
     Indication: PSORIASIS
     Route: 058
     Dates: start: 20100505, end: 20110617
  2. METHOTREXATE [Concomitant]
     Indication: PSORIATIC ARTHROPATHY
     Dosage: CUMULATIVE DOSE } OR =  500 MG TO { 1.5 GM
     Dates: start: 20080826
  3. NAPROXEN [Concomitant]
     Indication: PSORIATIC ARTHROPATHY
     Dates: end: 2012
  4. FOLIC ACID [Concomitant]
     Indication: PSORIATIC ARTHROPATHY
     Dates: start: 20080826
  5. VENLAFAXIN [Concomitant]
     Indication: PRODUCT USED FOR UNKNOWN INDICATION

REACTIONS (4)
  - Erythema [Recovered/Resolved]
  - Fatigue [Recovered/Resolved]
  - Depressed mood [Recovered/Resolved]
  - Paraesthesia [Recovered/Resolved]
